FAERS Safety Report 24762189 (Version 4)
Quarter: 2025Q4

REPORT INFORMATION
  Report Type: Report from Study
  Country: PY (occurrence: PY)
  Receive Date: 20241221
  Receipt Date: 20251127
  Transmission Date: 20260117
  Serious: Yes (Other)
  Sender: ROCHE
  Company Number: PY-ROCHE-10000159161

PATIENT
  Age: 59 Year
  Sex: Female

DRUGS (9)
  1. ACTEMRA [Suspect]
     Active Substance: TOCILIZUMAB
     Indication: Rheumatoid arthritis
     Dosage: DOSE: 162 MG/ 0.9 ML
     Route: 058
  2. ACTEMRA [Suspect]
     Active Substance: TOCILIZUMAB
     Route: 058
  3. PROLIA [Concomitant]
     Active Substance: DENOSUMAB
     Indication: Osteoporosis
  4. Martesia [Concomitant]
     Indication: Osteoporosis
     Dosage: FREQUENCY: 1 CAPSULE AT NIGHT
  5. Calcimax D3 [Concomitant]
     Indication: Osteoporosis
     Dosage: DOSE AND FREQUENCY WERE NOT REPORTED?AWAY FROM MEALS 16:00 H
  6. AVOCADO OIL\SOYBEAN OIL [Concomitant]
     Active Substance: AVOCADO OIL\SOYBEAN OIL
     Indication: Product used for unknown indication
     Dosage: 1 CAPSULE WITH LUNCH
  7. DEBLAX [Concomitant]
     Indication: Product used for unknown indication
  8. GLICLAZIDE [Concomitant]
     Active Substance: GLICLAZIDE
     Indication: Product used for unknown indication
  9. Maxivit D3 [Concomitant]
     Indication: Product used for unknown indication

REACTIONS (2)
  - Breast operation [Recovered/Resolved]
  - Nodule [Recovered/Resolved]

NARRATIVE: CASE EVENT DATE: 20241101
